FAERS Safety Report 11664644 (Version 1)
Quarter: 2015Q4

REPORT INFORMATION
  Report Type: Spontaneous
  Country: US (occurrence: US)
  Receive Date: 20151027
  Receipt Date: 20151027
  Transmission Date: 20160304
  Serious: No
  Sender: FDA-Public Use
  Company Number: US-ELI_LILLY_AND_COMPANY-US200912000274

PATIENT
  Sex: Female

DRUGS (2)
  1. FORTEO [Suspect]
     Active Substance: TERIPARATIDE
     Dosage: UNK, UNKNOWN
     Dates: start: 200909, end: 20091116
  2. FORTEO [Suspect]
     Active Substance: TERIPARATIDE
     Dosage: UNK, UNKNOWN
     Dates: start: 20091117

REACTIONS (3)
  - Nervousness [Unknown]
  - Arthralgia [Unknown]
  - Poor quality drug administered [Recovered/Resolved]

NARRATIVE: CASE EVENT DATE: 200911
